FAERS Safety Report 10594802 (Version 1)
Quarter: 2014Q4

REPORT INFORMATION
  Report Type: Spontaneous
  Country: SE (occurrence: SE)
  Receive Date: 20141120
  Receipt Date: 20141120
  Transmission Date: 20150529
  Serious: Yes (Hospitalization, Other)
  Sender: FDA-Public Use
  Company Number: SE-ROCHE-1489962

PATIENT
  Sex: Male

DRUGS (3)
  1. VALIUM [Suspect]
     Active Substance: DIAZEPAM
     Indication: PARKINSON^S DISEASE
     Route: 065
  2. AMPHETAMINE [Suspect]
     Active Substance: AMPHETAMINE
     Indication: PARKINSON^S DISEASE
     Route: 065
  3. ALCOHOL. [Suspect]
     Active Substance: ALCOHOL
     Indication: PRODUCT USED FOR UNKNOWN INDICATION
     Route: 065

REACTIONS (6)
  - Fibrocystic breast disease [Unknown]
  - Haemorrhage [Unknown]
  - Blood pressure [Unknown]
  - Skin haemorrhage [Unknown]
  - Drug abuse [Unknown]
  - Thrombosis [Unknown]
